FAERS Safety Report 11253737 (Version 1)
Quarter: 2015Q3

REPORT INFORMATION
  Report Type: Spontaneous
  Country: US (occurrence: None)
  Receive Date: 20150708
  Receipt Date: 20150708
  Transmission Date: 20151125
  Serious: No
  Sender: FDA-Public Use
  Company Number: None

PATIENT
  Sex: Female
  Weight: 56 kg

DRUGS (1)
  1. JANUVIA [Suspect]
     Active Substance: SITAGLIPTIN PHOSPHATE
     Indication: TYPE 2 DIABETES MELLITUS
     Dosage: 1DOSE
     Dates: start: 20150424

REACTIONS (7)
  - Headache [None]
  - Hypoaesthesia oral [None]
  - Hyperhidrosis [None]
  - Drug hypersensitivity [None]
  - Tongue disorder [None]
  - Blood glucose increased [None]
  - Tachycardia [None]

NARRATIVE: CASE EVENT DATE: 20150424
